FAERS Safety Report 9183186 (Version 1)
Quarter: 2012Q4

REPORT INFORMATION
  Report Type: 
  Country: US (occurrence: US)
  Receive Date: 20121030
  Receipt Date: 20121030
  Transmission Date: 20130627
  Serious: Yes (Hospitalization)
  Sender: FDA-Public Use
  Company Number: US-JNJFOC-20121013687

PATIENT
  Age: 78 Year
  Sex: Female

DRUGS (4)
  1. INFLIXIMAB, RECOMBINANT [Suspect]
     Indication: POLYARTHRITIS
     Route: 042
  2. INFLIXIMAB, RECOMBINANT [Suspect]
     Indication: COLITIS ULCERATIVE
     Route: 042
  3. METHOTREXATE [Suspect]
     Indication: POLYARTHRITIS
     Route: 065
  4. METHOTREXATE [Suspect]
     Indication: COLITIS ULCERATIVE
     Route: 065

REACTIONS (1)
  - Listeriosis [Recovering/Resolving]
